FAERS Safety Report 4684676-X (Version None)
Quarter: 2005Q2

REPORT INFORMATION
  Report Type: 
  Country: None (occurrence: None)
  Receive Date: 20050531
  Receipt Date: 20050124
  Transmission Date: 20051028
  Serious: Yes (Hospitalization)
  Sender: FDA-Public Use
  Company Number: US_0501109835

PATIENT
  Age: 29 Year
  Sex: Male
  Weight: 87 kg

DRUGS (17)
  1. ZYPREXA [Suspect]
     Indication: PSYCHOTIC DISORDER
     Dosage: 20 MG DAY
     Dates: start: 19970309, end: 20020320
  2. PROZAC [Concomitant]
  3. LORAZEPAM [Concomitant]
  4. LUVOX [Concomitant]
  5. SALSALATE [Concomitant]
  6. SELENIUM SULFIDE [Concomitant]
  7. SEROQUEL [Concomitant]
  8. PAXIL [Concomitant]
  9. BUSPAR [Concomitant]
  10. PROMETHAZINE [Concomitant]
  11. AUGMENTIN '125' [Concomitant]
  12. IBUPROFEN [Concomitant]
  13. HYDROCODONE W/APAP [Concomitant]
  14. AMOXICILLIN [Concomitant]
  15. DOXYCYCLINE [Concomitant]
  16. RISPERDAL [Concomitant]
  17. PROTEIN SUPPLEMENT [Concomitant]

REACTIONS (19)
  - ABDOMINAL PAIN LOWER [None]
  - ANGER [None]
  - ANXIETY [None]
  - CONJUNCTIVITIS [None]
  - DEHYDRATION [None]
  - DERMATITIS ALLERGIC [None]
  - DIABETES MELLITUS [None]
  - DIZZINESS [None]
  - HYPERCHOLESTEROLAEMIA [None]
  - HYPERGLYCAEMIA [None]
  - HYPERLIPIDAEMIA [None]
  - HYPERTENSION [None]
  - HYPOGLYCAEMIA [None]
  - HYPOKALAEMIA [None]
  - SEDATION [None]
  - SINUS TACHYCARDIA [None]
  - TESTICULAR PAIN [None]
  - URINARY RETENTION [None]
  - VISION BLURRED [None]
